FAERS Safety Report 9693309 (Version 1)
Quarter: 2013Q4

REPORT INFORMATION
  Report Type: Spontaneous
  Country: US (occurrence: US)
  Receive Date: 20131118
  Receipt Date: 20131118
  Transmission Date: 20140711
  Serious: Yes (Death, Hospitalization)
  Sender: FDA-Public Use
  Company Number: US-B.I. PHARMACEUTICALS,INC./RIDGEFIELD-2013-BI-37784BP

PATIENT
  Age: 86 Year
  Sex: Female

DRUGS (7)
  1. SPIRIVA [Suspect]
     Indication: PULMONARY FIBROSIS
     Dosage: 18 MCG
     Route: 055
     Dates: start: 2011, end: 20131107
  2. PULMICORT [Concomitant]
     Indication: DYSPNOEA
     Dosage: 360 MG
     Route: 055
     Dates: start: 201310
  3. GABAPENTIN [Concomitant]
     Indication: NEUROPATHY PERIPHERAL
     Dosage: 1200 MG
     Route: 048
     Dates: start: 2009
  4. ASA [Concomitant]
     Indication: STENT PLACEMENT
     Dosage: 81 MG
     Route: 048
     Dates: start: 1993
  5. TEMAZEPAM [Concomitant]
     Indication: INSOMNIA
     Dosage: 15 MG
     Route: 048
     Dates: start: 2011
  6. LOPID [Concomitant]
     Indication: BLOOD CHOLESTEROL INCREASED
     Dosage: 600 MG
     Route: 048
     Dates: start: 1993
  7. PREDNISONE [Concomitant]
     Indication: RHEUMATOID ARTHRITIS
     Route: 048
     Dates: start: 20130924

REACTIONS (3)
  - Pneumonia [Fatal]
  - Urinary tract infection [Recovered/Resolved]
  - Off label use [Recovered/Resolved]
